FAERS Safety Report 6087564-X (Version None)
Quarter: 2009Q1

REPORT INFORMATION
  Report Type: 
  Country: None (occurrence: None)
  Receive Date: 20090223
  Receipt Date: 20090209
  Transmission Date: 20090719
  Serious: Yes (Hospitalization)
  Sender: FDA-Public Use
  Company Number: FR-JNJFOC-20090202772

PATIENT
  Age: 57 Year
  Sex: Female

DRUGS (15)
  1. DOXORUBICIN HCL [Suspect]
     Indication: OVARIAN CANCER
     Dosage: CYCLE 1-4
     Route: 042
  2. EVISTA [Suspect]
     Indication: DRUG USE FOR UNKNOWN INDICATION
     Dosage: STARTED 5-6 YEARS AGO
     Route: 048
  3. OROCAL [Suspect]
     Indication: DRUG USE FOR UNKNOWN INDICATION
     Route: 048
  4. TAHOR [Suspect]
     Indication: DRUG USE FOR UNKNOWN INDICATION
     Route: 048
  5. DEXTROSE 5% [Concomitant]
     Dosage: 5%
     Route: 065
  6. BETNEVAL [Concomitant]
     Route: 065
  7. LANTUS [Concomitant]
     Route: 065
  8. STAGID [Concomitant]
     Route: 065
  9. LEVOTHYROX [Concomitant]
     Route: 065
  10. PYRIDOXINE [Concomitant]
     Route: 065
  11. NOVORAPID [Concomitant]
     Route: 065
  12. FORLAX [Concomitant]
     Route: 065
  13. POLARAMINE [Concomitant]
     Route: 065
  14. GENTAMICINE [Concomitant]
     Route: 065
  15. VANCOMYCIN [Concomitant]
     Route: 065

REACTIONS (5)
  - ERYTHEMA [None]
  - PALMAR-PLANTAR ERYTHRODYSAESTHESIA SYNDROME [None]
  - PIGMENTATION DISORDER [None]
  - PRURITUS GENITAL [None]
  - RASH PUSTULAR [None]
